FAERS Safety Report 6640267-2 (Version None)
Quarter: 2010Q1

REPORT INFORMATION
  Report Type: 
  Country: None (occurrence: None)
  Receive Date: 20100318
  Receipt Date: 20100310
  Transmission Date: 20100710
  Serious: Yes (Death, Other)
  Sender: FDA-Public Use
  Company Number: JP-ROCHE-691032

PATIENT
  Age: 50 Year
  Sex: Male

DRUGS (5)
  1. AVASTIN [Suspect]
     Indication: COLON CANCER METASTATIC
     Route: 041
  2. OXALIPLATIN [Concomitant]
     Route: 041
  3. FLUOROURACIL [Concomitant]
     Route: 041
  4. LEVOFOLINATE [Concomitant]
     Route: 041
  5. IRINOTECAN [Concomitant]
     Route: 041

REACTIONS (6)
  - DISEASE PROGRESSION [None]
  - ILEUS [None]
  - LARGE INTESTINE PERFORATION [None]
  - PSOAS ABSCESS [None]
  - RETROPERITONEAL ABSCESS [None]
  - THROMBOSIS [None]
